FAERS Safety Report 6240014-2 (Version None)
Quarter: 2009Q2

REPORT INFORMATION
  Report Type: 
  Country: None (occurrence: None)
  Receive Date: 20090623
  Receipt Date: 20090612
  Transmission Date: 20091009
  Serious: Yes (Other)
  Sender: FDA-Public Use
  Company Number: PHHY2009MX22067

PATIENT
  Age: 81 Year
  Sex: Male

DRUGS (7)
  1. STALEVO 100 [Suspect]
     Indication: PARKINSON'S DISEASE
     Dosage: 2.5 TABLETS DAILY
     Route: 048
     Dates: start: 20070701, end: 20090525
  2. STALEVO 100 [Suspect]
     Dosage: 2 TABLETS DAILY
     Route: 048
     Dates: start: 20090525
  3. PLAVIX [Concomitant]
  4. VENTOLIN [Concomitant]
  5. LIPITOR [Concomitant]
  6. ASPIRIN [Concomitant]
  7. NEUPRO [Concomitant]

REACTIONS (9)
  - AORTIC CALCIFICATION [None]
  - BLOOD PRESSURE FLUCTUATION [None]
  - BLOOD PRESSURE INCREASED [None]
  - CAROTID ARTERY BYPASS [None]
  - CLUMSINESS [None]
  - FALL [None]
  - HEAD INJURY [None]
  - HEART RATE DECREASED [None]
  - INCOHERENT [None]
